FAERS Safety Report 5724183-6 (Version None)
Quarter: 2008Q2

REPORT INFORMATION
  Report Type: 
  Country: None (occurrence: None)
  Receive Date: 20080430
  Receipt Date: 20080415
  Transmission Date: 20081010
  Serious: Yes (Death)
  Sender: FDA-Public Use
  Company Number: JP-GENENTECH-259812

PATIENT
  Sex: Female
  Weight: 46 kg

DRUGS (8)
  1. AVASTIN [Suspect]
     Indication: COLON CANCER METASTATIC
     Dosage: 5 MG/KG, QD
     Route: 041
     Dates: start: 20080303
  2. CAMPTO [Suspect]
     Indication: COLON CANCER METASTATIC
     Dosage: 200 MG, QD
     Route: 041
     Dates: start: 20080303
  3. FLUOROURACIL [Suspect]
     Indication: COLON CANCER METASTATIC
     Dosage: 540 MG, QD
     Dates: start: 20080303
  4. ISOVORIN [Suspect]
     Indication: COLON CANCER METASTATIC
     Dosage: 260 MG, QD
     Route: 041
     Dates: start: 20080303
  5. KYTRIL [Concomitant]
     Indication: DRUG USE FOR UNKNOWN INDICATION
     Dates: start: 20080303
  6. DEXAMETHASONE SODIUM PHOSPHATE [Concomitant]
     Indication: DRUG USE FOR UNKNOWN INDICATION
     Dates: start: 20080303
  7. GENERIC COMPONENT(S) NOT KNOWN [Concomitant]
     Indication: DRUG USE FOR UNKNOWN INDICATION
     Dates: start: 20080305
  8. DECADRON [Concomitant]
     Indication: DRUG USE FOR UNKNOWN INDICATION
     Dates: start: 20080305

REACTIONS (4)
  - DISSEMINATED INTRAVASCULAR COAGULATION [None]
  - NEPHRITIS [None]
  - PNEUMONIA [None]
  - SEPSIS [None]
